FAERS Safety Report 7112438-2 (Version None)
Quarter: 2010Q4

REPORT INFORMATION
  Report Type: 
  Country: None (occurrence: None)
  Receive Date: 20101119
  Receipt Date: 20101110
  Transmission Date: 20110411
  Serious: Yes (Hospitalization)
  Sender: FDA-Public Use
  Company Number: CA-JNJFOC-20101104659

PATIENT
  Sex: Male
  Weight: 68.1 kg

DRUGS (3)
  1. REMICADE [Suspect]
     Indication: CROHN'S DISEASE
     Route: 042
  2. METHOTREXATE [Concomitant]
  3. PENTASA [Concomitant]

REACTIONS (3)
  - HERNIA [None]
  - INTESTINAL RESECTION [None]
  - RESECTION OF RECTUM [None]
